FAERS Safety Report 11751890 (Version 1)
Quarter: 2015Q4

REPORT INFORMATION
  Report Type: Spontaneous
  Country: US (occurrence: US)
  Receive Date: 20151118
  Receipt Date: 20151118
  Transmission Date: 20160304
  Serious: Yes (Hospitalization, Other)
  Sender: FDA-Public Use
  Company Number: PHHY2015US147695

PATIENT
  Age: 58 Year
  Sex: Female

DRUGS (1)
  1. METOPROLOL [Suspect]
     Active Substance: METOPROLOL
     Indication: PRODUCT USED FOR UNKNOWN INDICATION
     Route: 065

REACTIONS (13)
  - Acute respiratory distress syndrome [Recovered/Resolved]
  - Crepitations [Recovered/Resolved]
  - Dyspnoea [Recovered/Resolved]
  - Productive cough [Recovered/Resolved]
  - Respiratory alkalosis [Recovered/Resolved]
  - Pleural effusion [Recovered/Resolved]
  - Peripheral swelling [Recovered/Resolved]
  - Eosinophilic pneumonia acute [Recovered/Resolved]
  - Hypoxia [Recovered/Resolved]
  - Alveolar-arterial oxygen gradient increased [Recovered/Resolved]
  - Cellulitis [Recovered/Resolved]
  - Lung infiltration [Recovered/Resolved]
  - Pain in extremity [Recovered/Resolved]
